FAERS Safety Report 25801659 (Version 1)
Quarter: 2025Q3

REPORT INFORMATION
  Report Type: Spontaneous
  Country: US (occurrence: None)
  Receive Date: 20250912
  Receipt Date: 20250912
  Transmission Date: 20251021
  Serious: Yes (Hospitalization)
  Sender: FDA-CTU
  Company Number: None

PATIENT
  Age: 4 Year
  Sex: Male

DRUGS (8)
  1. EPIDIOLEX [Suspect]
     Active Substance: CANNABIDIOL
     Indication: Lennox-Gastaut syndrome
     Dosage: FREQUENCY : TWICE A DAY;?
     Route: 048
     Dates: start: 20250218
  2. DIASTAT 2.5MG PED RECTALKIT #2 [Concomitant]
  3. SINGULAIR [Concomitant]
     Active Substance: MONTELUKAST SODIUM
  4. TRILEPTAL 300MG/5ML ORAL SUSP [Concomitant]
  5. PHENOBARBITAL 100MG TABLETS [Concomitant]
  6. CLOBAZAM 2.5MG/ML SUSPENSION 120ML [Concomitant]
  7. MIRALAX 3350 POWDER PACKETS [Concomitant]
  8. MULTIVITAMIN ADULTS TABLETS [Concomitant]

REACTIONS (3)
  - Medical induction of coma [None]
  - Brain operation [None]
  - Sedative therapy [None]

NARRATIVE: CASE EVENT DATE: 20250825
